FAERS Safety Report 4591420-3 (Version None)
Quarter: 2005Q1

REPORT INFORMATION
  Report Type: 
  Country: None (occurrence: None)
  Receive Date: 20050225
  Receipt Date: 20050223
  Transmission Date: 20050727
  Serious: Yes (Death)
  Sender: FDA-Public Use
  Company Number: PHBS2005JP02809

PATIENT
  Age: 58 Year
  Sex: Male

DRUGS (4)
  1. NEULEPTIL [Suspect]
     Indication: SCHIZOPHRENIA
     Route: 048
  2. DOGMATYL [Suspect]
     Indication: SCHIZOPHRENIA
     Route: 048
  3. LEXOTAN [Suspect]
     Indication: SCHIZOPHRENIA
     Route: 048
  4. MELLERIL [Suspect]
     Indication: SCHIZOPHRENIA
     Route: 048

REACTIONS (9)
  - BILIARY NEOPLASM [None]
  - HEPATIC ENCEPHALOPATHY [None]
  - HEPATIC FAILURE [None]
  - HEPATITIS B [None]
  - MULTI-ORGAN FAILURE [None]
  - NEUROLEPTIC MALIGNANT SYNDROME [None]
  - RENAL FAILURE ACUTE [None]
  - STAPHYLOCOCCAL SEPSIS [None]
  - TOXIC EPIDERMAL NECROLYSIS [None]
